FAERS Safety Report 12579851 (Version 3)
Quarter: 2020Q3

REPORT INFORMATION
  Report Type: Report from Study
  Country: AR (occurrence: AR)
  Receive Date: 20160721
  Receipt Date: 20200125
  Transmission Date: 20201105
  Serious: Yes (Hospitalization, Other)
  Sender: FDA-Public Use
  Company Number: PHHY2016AR092463

PATIENT
  Sex: Female

DRUGS (12)
  1. METFORMIN [Suspect]
     Active Substance: METFORMIN HYDROCHLORIDE
     Indication: DIABETES MELLITUS MANAGEMENT
     Dosage: UNK
     Route: 065
     Dates: start: 2016
  2. LANTUS [Concomitant]
     Active Substance: INSULIN GLARGINE
     Indication: DIABETES MELLITUS
     Dosage: 38 U, QD
     Route: 065
  3. THYROXINE [Concomitant]
     Active Substance: LEVOTHYROXINE
     Indication: THYROID MASS
     Route: 065
  4. DIOVAN D [Suspect]
     Active Substance: HYDROCHLOROTHIAZIDE\VALSARTAN
     Dosage: 0.5 DF, BID (HALF IN THE MORNING AND HALF AT NIGHT)
     Route: 065
     Dates: start: 20140704
  5. DIOVAN D [Suspect]
     Active Substance: HYDROCHLOROTHIAZIDE\VALSARTAN
     Dosage: 1 DF, QD
     Route: 065
  6. METFORMIN [Suspect]
     Active Substance: METFORMIN HYDROCHLORIDE
     Indication: DIABETES MELLITUS
     Dosage: 3 DF, QD
     Route: 065
     Dates: start: 2014
  7. DIOVAN D [Suspect]
     Active Substance: HYDROCHLOROTHIAZIDE\VALSARTAN
     Indication: HYPERTENSION
     Dosage: 0.5 DF, BID (HALF IN THE MORNING AND HALF AT NIGHT)
     Route: 065
     Dates: start: 2014
  8. DIOVAN D [Suspect]
     Active Substance: HYDROCHLOROTHIAZIDE\VALSARTAN
     Dosage: UNK UNK, UNKNOWN (6 YEARS AGO)
     Route: 065
     Dates: end: 201910
  9. ALPERTAN D [Concomitant]
     Indication: PRODUCT USED FOR UNKNOWN INDICATION
     Route: 065
  10. GALVUS MET [Suspect]
     Active Substance: METFORMIN HYDROCHLORIDE\VILDAGLIPTIN
     Indication: DIABETES MELLITUS
     Dosage: 2 DF, QD
     Route: 065
     Dates: start: 2014
  11. GALVUS [Suspect]
     Active Substance: VILDAGLIPTIN
     Indication: DIABETES MELLITUS
     Dosage: 3 DF, QD
     Route: 065
     Dates: start: 2014
  12. GALVUS [Suspect]
     Active Substance: VILDAGLIPTIN
     Dosage: 1 DF, BID (1 AT MIDDAY AND 1 AT NIGHT)
     Route: 065
     Dates: start: 20140704

REACTIONS (29)
  - Hepatitis [Recovered/Resolved]
  - Abdominal pain [Recovered/Resolved]
  - Goitre [Unknown]
  - Pyrexia [Recovered/Resolved]
  - Diarrhoea [Recovered/Resolved]
  - Diabetic coma [Recovering/Resolving]
  - Blood urine present [Unknown]
  - Glycosylated haemoglobin increased [Unknown]
  - Movement disorder [Unknown]
  - Blood pressure increased [Recovering/Resolving]
  - Chromaturia [Unknown]
  - Hepatic steatosis [Unknown]
  - Anal fissure [Recovered/Resolved]
  - Hypothyroidism [Unknown]
  - Weight decreased [Recovered/Resolved]
  - Overdose [Unknown]
  - Weight increased [Not Recovered/Not Resolved]
  - Pain [Recovered/Resolved]
  - Yellow skin [Unknown]
  - Drug ineffective [Recovered/Resolved]
  - Vomiting [Recovered/Resolved]
  - Bone pain [Not Recovered/Not Resolved]
  - Arthralgia [Recovered/Resolved]
  - Faeces discoloured [Unknown]
  - Malaise [Not Recovered/Not Resolved]
  - Wrong technique in product usage process [Unknown]
  - Urine analysis abnormal [Not Recovered/Not Resolved]
  - Drug-induced liver injury [Unknown]
  - Hyperglycaemia [Unknown]

NARRATIVE: CASE EVENT DATE: 2014
